FAERS Safety Report 23046801 (Version 2)
Quarter: 2023Q4

REPORT INFORMATION
  Report Type: Report from Study
  Country: US (occurrence: US)
  Receive Date: 20231009
  Receipt Date: 20231010
  Transmission Date: 20240110
  Serious: Yes (Death)
  Sender: FDA-Public Use
  Company Number: US-PFIZER INC-PV202200118518

PATIENT
  Age: 82 Year
  Sex: Male

DRUGS (4)
  1. INLYTA [Suspect]
     Active Substance: AXITINIB
     Indication: Renal cancer
     Dosage: 1 MG, 2X/DAY
     Route: 048
     Dates: start: 20210909
  2. INLYTA [Suspect]
     Active Substance: AXITINIB
     Dosage: 1 MG, 1X/DAY
     Route: 048
     Dates: start: 20221114
  3. GABAPENTIN [Concomitant]
     Active Substance: GABAPENTIN
     Dosage: 10 MG
  4. AMLODIPINE [Concomitant]
     Active Substance: AMLODIPINE BESYLATE
     Dosage: UNK

REACTIONS (3)
  - Death [Fatal]
  - Weight decreased [Unknown]
  - Off label use [Unknown]

NARRATIVE: CASE EVENT DATE: 20210909
